FAERS Safety Report 23849186 (Version 2)
Quarter: 2024Q3

REPORT INFORMATION
  Report Type: Spontaneous
  Country: GB (occurrence: None)
  Receive Date: 20240513
  Receipt Date: 20240829
  Transmission Date: 20241016
  Serious: Yes (Death)
  Sender: ASTRAZENECA
  Company Number: 2024A111265

PATIENT

DRUGS (2)
  1. DURVALUMAB [Suspect]
     Active Substance: DURVALUMAB
     Indication: Product used for unknown indication
  2. DOMVANALIMAB [Suspect]
     Active Substance: DOMVANALIMAB
     Indication: Product used for unknown indication

REACTIONS (1)
  - Death [Fatal]
